FAERS Safety Report 10022566 (Version 1)
Quarter: 2014Q1

REPORT INFORMATION
  Report Type: Spontaneous
  Country: US (occurrence: US)
  Receive Date: 20140319
  Receipt Date: 20140319
  Transmission Date: 20141002
  Serious: Yes (Hospitalization, Other)
  Sender: FDA-Public Use
  Company Number: US-ELI_LILLY_AND_COMPANY-US201403002775

PATIENT
  Age: 60 Year
  Sex: Male

DRUGS (5)
  1. HUMULIN NPH [Suspect]
     Indication: DIABETES MELLITUS
     Dosage: 40 U, QD
     Route: 065
  2. HUMULIN NPH [Suspect]
     Dosage: 20 U, EACH EVENING
     Route: 065
  3. NOVOLOG MIX [Suspect]
     Indication: DIABETES MELLITUS
     Dosage: 40 U, QD
     Route: 065
  4. NOVOLOG MIX [Suspect]
     Dosage: 20 U, TID
     Route: 065
  5. NOVOLIN [Suspect]
     Indication: DIABETES MELLITUS
     Dosage: 40 U, QD
     Route: 065

REACTIONS (3)
  - Diabetic ketoacidosis [Unknown]
  - Coma [Recovered/Resolved]
  - Blood glucose increased [Recovering/Resolving]
